FAERS Safety Report 15770382 (Version 1)
Quarter: 2018Q4

REPORT INFORMATION
  Report Type: Spontaneous
  Country: US (occurrence: US)
  Receive Date: 20181206
  Receipt Date: 20181206
  Transmission Date: 20190205
  Serious: No
  Sender: FDA-Public Use
  Company Number: None

PATIENT
  Age: 51 Year
  Sex: Female

DRUGS (5)
  1. OLUMIANT [Suspect]
     Active Substance: BARICITINIB
     Indication: PSORIATIC ARTHROPATHY
  2. OLUMIANT [Suspect]
     Active Substance: BARICITINIB
     Indication: PSORIASIS
     Route: 048
  3. OLUMIANT [Suspect]
     Active Substance: BARICITINIB
     Indication: PSORIASIS
  4. OLUMIANT [Suspect]
     Active Substance: BARICITINIB
     Indication: RHEUMATOID ARTHRITIS
     Route: 048
  5. OLUMIANT [Suspect]
     Active Substance: BARICITINIB
     Indication: PSORIATIC ARTHROPATHY
     Route: 048

REACTIONS (1)
  - Condition aggravated [None]
